FAERS Safety Report 8343493-X (Version None)
Quarter: 2012Q2

REPORT INFORMATION
  Report Type: 
  Country: None (occurrence: None)
  Receive Date: 20120508
  Receipt Date: 20120504
  Transmission Date: 20120825
  Serious: Yes (Disabling, Other)
  Sender: FDA-Public Use
  Company Number: PHHY2011DE49569

PATIENT
  Sex: Male

DRUGS (5)
  1. CLOZAPINE [Suspect]
     Dosage: 150 MG, QD
     Dates: start: 20120101
  2. OLANZAPINE [Concomitant]
     Indication: SCHIZOPHRENIA
     Dates: start: 20110601, end: 20120101
  3. ABILIFY [Concomitant]
     Indication: SCHIZOPHRENIA
     Dates: start: 20110601, end: 20120101
  4. CLOZAPINE [Suspect]
     Indication: SCHIZOPHRENIA
     Dosage: 100 MG
     Dates: start: 19900101, end: 20100101
  5. CLOZAPINE [Suspect]
     Dosage: 200 MG, QD
     Dates: start: 20100101

REACTIONS (3)
  - ERECTILE DYSFUNCTION [None]
  - SCHIZOPHRENIA [None]
  - PRIAPISM [None]
